FAERS Safety Report 4899311-5 (Version None)
Quarter: 2006Q1

REPORT INFORMATION
  Report Type: 
  Country: None (occurrence: None)
  Receive Date: 20060131
  Receipt Date: 20060119
  Transmission Date: 20060701
  Serious: Yes (Death, Hospitalization)
  Sender: FDA-Public Use
  Company Number: HQWYE052322AUG05

PATIENT
  Age: 91 Year
  Sex: Female

DRUGS (1)
  1. CORDARONE [Suspect]
     Indication: ATRIAL FIBRILLATION
     Dosage: ORAL
     Route: 048
     Dates: start: 19990101

REACTIONS (8)
  - ARTERIOSCLEROSIS [None]
  - CARDIAC FAILURE [None]
  - CHEST PAIN [None]
  - DYSPNOEA [None]
  - FIBROSIS [None]
  - HEPATIC CONGESTION [None]
  - HEPATITIS FULMINANT [None]
  - PNEUMONITIS [None]
